FAERS Safety Report 10870714 (Version 2)
Quarter: 2015Q2

REPORT INFORMATION
  Report Type: Spontaneous
  Country: US (occurrence: None)
  Receive Date: 20150220
  Receipt Date: 20150626
  Transmission Date: 20150821
  Serious: Yes (Other)
  Sender: FDA-Public Use
  Company Number: US-H14001-15-00246

PATIENT
  Age: 61 Year
  Sex: Male
  Weight: 97.43 kg

DRUGS (4)
  1. CYTOXAN [Suspect]
     Active Substance: CYCLOPHOSPHAMIDE
     Indication: PLASMA CELL MYELOMA
     Dosage: (450 MG,ON DAY 1)
     Route: 048
     Dates: start: 20140903
  2. DECADRON [Suspect]
     Active Substance: DEXAMETHASONE
     Indication: PLASMA CELL MYELOMA
     Dosage: (40 MG,ON DAY 22)
     Route: 048
     Dates: start: 20140903
  3. DEXAMETHASONE SODIUM PHOSPHATE. [Suspect]
     Active Substance: DEXAMETHASONE SODIUM PHOSPHATE
     Indication: PLASMA CELL MYELOMA
     Dosage: (20 MG,ON DAYS 1, 2, 8, 9, 15, 16)
     Route: 042
     Dates: start: 20140903
  4. CARFILZOMIB [Suspect]
     Active Substance: CARFILZOMIB
     Indication: PLASMA CELL MYELOMA
     Dosage: (30 ,ON DAYS 1, 2, 8, 9, 15, 16)
     Route: 042
     Dates: start: 20140903

REACTIONS (2)
  - Marrow hyperplasia [None]
  - Second primary malignancy [None]

NARRATIVE: CASE EVENT DATE: 20141113
